FAERS Safety Report 5604349-6 (Version None)
Quarter: 2008Q1

REPORT INFORMATION
  Report Type: 
  Country: None (occurrence: None)
  Receive Date: 20080123
  Receipt Date: 20080123
  Transmission Date: 20080703
  Serious: Yes (Other)
  Sender: FDA-Public Use
  Company Number: None

PATIENT
  Age: 54 Year
  Sex: Male
  Weight: 97.5234 kg

DRUGS (3)
  1. SIMVASTATIN [Suspect]
     Indication: BLOOD CHOLESTEROL
     Dosage: 1/2 TAB 1 PER DAY PO
     Route: 048
     Dates: start: 20070601, end: 20071118
  2. CARVEDILOL [Suspect]
     Indication: HYPERTENSION
     Dosage: 1 AND 1/2 2 TIMES PER DAY PO
     Route: 048
     Dates: start: 20070601, end: 20071113
  3. LEVOTHYROXINE SODIUM [Concomitant]

REACTIONS (10)
  - ASTHENIA [None]
  - ATRIAL FIBRILLATION [None]
  - DYSPNOEA EXERTIONAL [None]
  - FATIGUE [None]
  - HEADACHE [None]
  - HEART RATE IRREGULAR [None]
  - IRRITABILITY [None]
  - MEMORY IMPAIRMENT [None]
  - MYALGIA [None]
  - RENAL PAIN [None]
